FAERS Safety Report 21240564 (Version 3)
Quarter: 2023Q1

REPORT INFORMATION
  Report Type: Spontaneous
  Country: US (occurrence: US)
  Receive Date: 20220822
  Receipt Date: 20230118
  Transmission Date: 20230418
  Serious: Yes (Hospitalization, Other)
  Sender: FDA-Public Use
  Company Number: US-BRISTOL-MYERS SQUIBB COMPANY-2022-091493

PATIENT
  Age: 74 Year
  Sex: Female
  Weight: 80 kg

DRUGS (2)
  1. NIVOLUMAB [Suspect]
     Active Substance: NIVOLUMAB
     Indication: Plasma cell myeloma
     Dosage: DOSE : UNKNOWN;     FREQ :
     Route: 042
     Dates: start: 20220613
  2. YERVOY [Suspect]
     Active Substance: IPILIMUMAB
     Indication: Plasma cell myeloma
     Route: 042

REACTIONS (8)
  - Neuropathy peripheral [Recovered/Resolved]
  - Constipation [Unknown]
  - COVID-19 [Unknown]
  - Intentional product use issue [Unknown]
  - Anaemia [Unknown]
  - Migraine [Recovered/Resolved]
  - Fatigue [Unknown]
  - Hypersomnia [Unknown]

NARRATIVE: CASE EVENT DATE: 20220617
